FAERS Safety Report 4713547-5 (Version None)
Quarter: 2005Q3

REPORT INFORMATION
  Report Type: 
  Country: None (occurrence: None)
  Receive Date: 20050713
  Receipt Date: 20050706
  Transmission Date: 20060218
  Serious: Yes (Other)
  Sender: FDA-Public Use
  Company Number: US-BRISTOL-MYERS SQUIBB COMPANY-13027362

PATIENT
  Age: 74 Year
  Sex: Male

DRUGS (1)
  1. CARBOPLATIN [Suspect]
     Dates: start: 20050621, end: 20050621

REACTIONS (1)
  - DELUSION [None]
